FAERS Safety Report 9212907 (Version 1)
Quarter: 2013Q2

REPORT INFORMATION
  Report Type: Spontaneous
  Country: US (occurrence: None)
  Receive Date: 20130403
  Receipt Date: 20130403
  Transmission Date: 20140414
  Serious: No
  Sender: FDA-Public Use
  Company Number: None

PATIENT
  Age: 69 Year
  Sex: Male

DRUGS (2)
  1. ZYTIGA 250 MG JANSSEN BIOTECH [Suspect]
     Indication: BONE CANCER
     Route: 048
     Dates: start: 201301, end: 201302
  2. ZYTIGA 250 MG JANSSEN BIOTECH [Suspect]
     Indication: LUNG NEOPLASM MALIGNANT
     Route: 048
     Dates: start: 201301, end: 201302

REACTIONS (1)
  - Treatment failure [None]
